FAERS Safety Report 11648151 (Version 2)
Quarter: 2015Q4

REPORT INFORMATION
  Report Type: Report from Study
  Country: US (occurrence: US)
  Receive Date: 20151021
  Receipt Date: 20151029
  Transmission Date: 20160304
  Serious: Yes (Hospitalization)
  Sender: FDA-Public Use
  Company Number: US-BIOGENIDEC-2015BI140290

PATIENT
  Age: 74 Year
  Sex: Female

DRUGS (9)
  1. BACLOFEN. [Concomitant]
     Active Substance: BACLOFEN
  2. PAXIL [Concomitant]
     Active Substance: PAROXETINE HYDROCHLORIDE
  3. WARFARIN SODIUM. [Concomitant]
     Active Substance: WARFARIN SODIUM
  4. SIMVASTATIN. [Concomitant]
     Active Substance: SIMVASTATIN
  5. LEVOTHYROXINE SODIUM. [Concomitant]
     Active Substance: LEVOTHYROXINE SODIUM
  6. LISINOPRIL. [Concomitant]
     Active Substance: LISINOPRIL
  7. TECFIDERA [Suspect]
     Active Substance: DIMETHYL FUMARATE
     Indication: MULTIPLE SCLEROSIS
     Dates: start: 20130702
  8. TECFIDERA [Suspect]
     Active Substance: DIMETHYL FUMARATE
     Indication: MULTIPLE SCLEROSIS
     Route: 048
     Dates: start: 20140210
  9. ASPIRIN. [Concomitant]
     Active Substance: ASPIRIN

REACTIONS (3)
  - Hypoaesthesia [Unknown]
  - Abasia [Not Recovered/Not Resolved]
  - Pain in extremity [Unknown]
